FAERS Safety Report 6187964-3 (Version None)
Quarter: 2009Q2

REPORT INFORMATION
  Report Type: 
  Country: None (occurrence: None)
  Receive Date: 20090513
  Receipt Date: 20090502
  Transmission Date: 20091009
  Serious: Yes (Other)
  Sender: FDA-Public Use
  Company Number: US-ROCHE-631486

PATIENT
  Sex: Female
  Weight: 54.9 kg

DRUGS (1)
  1. CAPECITABINE [Suspect]
     Indication: BREAST CANCER
     Route: 050
     Dates: start: 20080928, end: 20090402

REACTIONS (1)
  - DISEASE PROGRESSION [None]
